FAERS Safety Report 21999822 (Version 1)
Quarter: 2023Q1

REPORT INFORMATION
  Report Type: Spontaneous
  Country: AU (occurrence: AU)
  Receive Date: 20230216
  Receipt Date: 20230216
  Transmission Date: 20230417
  Serious: Yes (Hospitalization, Other)
  Sender: FDA-Public Use
  Company Number: AU-Atnahs Limited-ATNAHS20230200494

PATIENT
  Age: 26 Year
  Sex: Male

DRUGS (10)
  1. DIAZEPAM [Suspect]
     Active Substance: DIAZEPAM
     Indication: Product used for unknown indication
  2. ARIPIPRAZOLE [Suspect]
     Active Substance: ARIPIPRAZOLE
     Indication: Product used for unknown indication
  3. ATOMOXETINE [Suspect]
     Active Substance: ATOMOXETINE
     Indication: Product used for unknown indication
  4. BENZTROPINE [Suspect]
     Active Substance: BENZTROPINE
     Indication: Product used for unknown indication
     Dosage: IN THE MORNING
  5. CLOZAPINE [Suspect]
     Active Substance: CLOZAPINE
     Indication: Product used for unknown indication
     Dates: start: 20220216, end: 20220216
  6. CLOZAPINE [Suspect]
     Active Substance: CLOZAPINE
  7. OLANZAPINE [Suspect]
     Active Substance: OLANZAPINE
     Indication: Product used for unknown indication
     Dosage: AT NIGHT
  8. TEMAZEPAM [Suspect]
     Active Substance: TEMAZEPAM
     Indication: Product used for unknown indication
  9. TEMAZEPAM [Suspect]
     Active Substance: TEMAZEPAM
  10. ZUCLOPENTHIXOL [Suspect]
     Active Substance: ZUCLOPENTHIXOL
     Indication: Product used for unknown indication
     Dates: start: 20220218

REACTIONS (15)
  - Haemorrhage [Unknown]
  - Blood creatine phosphokinase increased [Unknown]
  - Contraindicated product administered [Unknown]
  - C-reactive protein increased [Unknown]
  - Electrocardiogram ST segment elevation [Unknown]
  - General physical health deterioration [Unknown]
  - Iron deficiency [Unknown]
  - Iron metabolism disorder [Unknown]
  - Mean cell haemoglobin decreased [Unknown]
  - Mean cell volume decreased [Unknown]
  - Orthostatic hypotension [Unknown]
  - Sinus tachycardia [Unknown]
  - Tachycardia [Unknown]
  - Thalassaemia [Unknown]
  - Troponin increased [Unknown]

NARRATIVE: CASE EVENT DATE: 20220211
